FAERS Safety Report 9832013 (Version 1)
Quarter: 2014Q1

REPORT INFORMATION
  Report Type: Spontaneous
  Country: US (occurrence: US)
  Receive Date: 20140121
  Receipt Date: 20140121
  Transmission Date: 20141002
  Serious: No
  Sender: FDA-Public Use
  Company Number: US-BAYER-2014-010194

PATIENT
  Age: 86 Year
  Sex: Male
  Weight: 82.54 kg

DRUGS (4)
  1. ALEVE TABLET [Suspect]
     Dosage: 1 DF, BID
     Route: 048
     Dates: start: 201310, end: 20140116
  2. LEVOTHYROXINE [Concomitant]
  3. ATENOLOL [Concomitant]
  4. LOVASTATIN [Concomitant]

REACTIONS (3)
  - Constipation [Not Recovered/Not Resolved]
  - Incorrect drug administration duration [None]
  - Expired drug administered [None]
